FAERS Safety Report 17786251 (Version 1)
Quarter: 2020Q2

REPORT INFORMATION
  Report Type: Report from Study
  Country: CO (occurrence: CO)
  Receive Date: 20200514
  Receipt Date: 20200514
  Transmission Date: 20200714
  Serious: Yes (Hospitalization)
  Sender: FDA-Public Use
  Company Number: NVSC2018CO003828

PATIENT

DRUGS (1)
  1. EXJADE [Suspect]
     Active Substance: DEFERASIROX
     Indication: BLOOD DISORDER
     Dosage: 2 DF, QD (2 OF 500MG)
     Route: 065

REACTIONS (8)
  - Lymph gland infection [Unknown]
  - Arthralgia [Unknown]
  - Headache [Unknown]
  - Pain in extremity [Unknown]
  - Vomiting [Unknown]
  - Inflammation [Unknown]
  - Haemoglobin decreased [Unknown]
  - Pyrexia [Unknown]
